FAERS Safety Report 16126970 (Version 1)
Quarter: 2019Q1

REPORT INFORMATION
  Report Type: Spontaneous
  Country: US (occurrence: US)
  Receive Date: 20190328
  Receipt Date: 20190328
  Transmission Date: 20190418
  Serious: No
  Sender: FDA-Public Use
  Company Number: US-AMGEN-USASP2019047543

PATIENT
  Age: 59 Year
  Sex: Male

DRUGS (6)
  1. METOPROLOL SANDOZ [METOPROLOL SUCCINATE] [Concomitant]
     Dosage: 25 MILLIGRAM
  2. NAPROXEN. [Concomitant]
     Active Substance: NAPROXEN
     Dosage: 500 MILLIGRAM
  3. LOSARTAN. [Concomitant]
     Active Substance: LOSARTAN
     Dosage: 100-12.5
  4. ASPIRIN [ACETYLSALICYLIC ACID] [Concomitant]
     Active Substance: ASPIRIN
     Dosage: 81 MILLIGRAM
  5. ENBREL [Suspect]
     Active Substance: ETANERCEPT
     Indication: RHEUMATOID ARTHRITIS
     Dosage: 25 MILLIGRAM, 2 TIMES/WK
     Route: 058
  6. METFORMIN HCL [Concomitant]
     Active Substance: METFORMIN HYDROCHLORIDE
     Dosage: 1000 MILLIGRAM

REACTIONS (1)
  - Musculoskeletal stiffness [Unknown]
